FAERS Safety Report 20653138 (Version 1)
Quarter: 2022Q1

REPORT INFORMATION
  Report Type: Spontaneous
  Country: BR (occurrence: BR)
  Receive Date: 20220330
  Receipt Date: 20220330
  Transmission Date: 20220423
  Serious: Yes (Other)
  Sender: FDA-Public Use
  Company Number: BR-GSKCCFAMERS-Case-01330261_AE-77348

PATIENT
  Sex: Female

DRUGS (1)
  1. ALBUTEROL [Suspect]
     Active Substance: ALBUTEROL
     Indication: Asthma
     Dosage: 4 MG, BID (8MG/DAY)

REACTIONS (4)
  - Asthmatic crisis [Unknown]
  - Asthma [Unknown]
  - Incorrect dose administered [Unknown]
  - Product prescribing issue [Unknown]
